FAERS Safety Report 6924585-6 (Version None)
Quarter: 2010Q3

REPORT INFORMATION
  Report Type: 
  Country: None (occurrence: None)
  Receive Date: 20100816
  Receipt Date: 20100812
  Transmission Date: 20110219
  Serious: Yes (Life-Threatening, Hospitalization)
  Sender: FDA-Public Use
  Company Number: FR-ASTRAZENECA-2010SE11629

PATIENT
  Age: 289 Month
  Sex: Female
  Weight: 59 kg

DRUGS (4)
  1. SYMBICORT [Suspect]
     Indication: BRONCHITIS
     Dosage: ONE INHALATION TWO TIMES A DAY
     Route: 055
     Dates: start: 20100203, end: 20100301
  2. UNSPECIFIED ORAL CONTRACEPTION [Concomitant]
     Indication: CONTRACEPTION
     Route: 048
     Dates: start: 20100101
  3. SPEDIFEN [Concomitant]
     Indication: PAIN
     Route: 048
     Dates: start: 20100101
  4. UNSPECIFIED ORAL CORTICOSTEROIDS [Concomitant]
     Indication: BRONCHITIS
     Route: 048
     Dates: start: 20100203, end: 20100205

REACTIONS (3)
  - HEPATOMEGALY [None]
  - SPLENOMEGALY [None]
  - THROMBOCYTOPENIA [None]
